FAERS Safety Report 12801002 (Version 1)
Quarter: 2016Q4

REPORT INFORMATION
  Report Type: Spontaneous
  Country: US (occurrence: US)
  Receive Date: 20161003
  Receipt Date: 20161003
  Transmission Date: 20170207
  Serious: No
  Sender: FDA-Public Use
  Company Number: US-AUROBINDO-AUR-APL-2015-10761

PATIENT
  Sex: Male
  Weight: 80.74 kg

DRUGS (1)
  1. SUMATRIPTAN TABLET [Suspect]
     Active Substance: SUMATRIPTAN
     Indication: MIGRAINE
     Dosage: 1 DF, UNK
     Route: 048

REACTIONS (3)
  - Migraine [Unknown]
  - Therapeutic response delayed [Unknown]
  - Drug ineffective [Unknown]
